FAERS Safety Report 4341780-3 (Version None)
Quarter: 2004Q2

REPORT INFORMATION
  Report Type: 
  Country: None (occurrence: None)
  Receive Date: 20040416
  Receipt Date: 20040406
  Transmission Date: 20050107
  Serious: Yes (Death, Hospitalization)
  Sender: FDA-Public Use
  Company Number: 04P-163-0250843-00

PATIENT
  Age: 83 Year
  Sex: Female

DRUGS (7)
  1. HUMIRA [Suspect]
     Indication: RHEUMATOID ARTHRITIS
     Dates: start: 20040122
  2. PREDNISONE [Concomitant]
  3. PROPACET 100 [Concomitant]
  4. EPOETIN ALFA [Concomitant]
  5. CYPROHEPTADINE HYDROCHLORIDE [Concomitant]
  6. CALCIUM [Concomitant]
  7. ERGOCALCIFEROL [Concomitant]

REACTIONS (2)
  - BACTERAEMIA [None]
  - SEPSIS [None]
